FAERS Safety Report 7204049-5 (Version None)
Quarter: 2010Q4

REPORT INFORMATION
  Report Type: 
  Country: None (occurrence: None)
  Receive Date: 20101230
  Receipt Date: 20101225
  Transmission Date: 20110411
  Serious: Yes (Death, Other)
  Sender: FDA-Public Use
  Company Number: PHHY2010CA88361

PATIENT

DRUGS (8)
  1. NORTRIPTYLINE [Suspect]
     Indication: PSYCHOTIC DISORDER
     Dosage: 100 MG
  2. RISPERIDONE [Suspect]
     Indication: PSYCHOTIC DISORDER
     Dosage: UNKNOWN
  3. RISPERIDONE [Suspect]
     Dosage: 1 MG, BID
  4. RISPERIDONE [Suspect]
     Dosage: 3 MG, QD (1 MG IN MORNING AND 2 MG IN NIGHT)
  5. OLANZAPINE [Suspect]
  6. VENLAFAXINE [Suspect]
     Indication: DEPRESSION
     Dosage: 100 MG
  7. LOXAPINE [Suspect]
     Dosage: 25 MG
  8. DIPHENHYDRAMINE [Suspect]
     Dosage: 25 MG

REACTIONS (10)
  - AMENORRHOEA [None]
  - HYPERPROLACTINAEMIA [None]
  - HYPOTENSION [None]
  - LOSS OF CONSCIOUSNESS [None]
  - MYDRIASIS [None]
  - PULMONARY EMBOLISM [None]
  - PULSE ABSENT [None]
  - RESPIRATORY ARREST [None]
  - RESPIRATORY RATE DECREASED [None]
  - WEIGHT INCREASED [None]
